FAERS Safety Report 5202584-2 (Version None)
Quarter: 2006Q4

REPORT INFORMATION
  Report Type: 
  Country: None (occurrence: None)
  Receive Date: 20061016
  Receipt Date: 20060824
  Transmission Date: 20070319
  Serious: No
  Sender: FDA-Public Use
  Company Number: 2006SP003120

PATIENT
  Age: 85 Year
  Sex: Female
  Weight: 61.6892 kg

DRUGS (3)
  1. LUNESTA [Suspect]
     Indication: SLEEP DISORDER
     Dosage: 2 MG;HS;ORAL
     Route: 048
     Dates: start: 20060701, end: 20060801
  2. PLAVIX [Concomitant]
  3. NORTRIPTYLINE HCL [Concomitant]

REACTIONS (4)
  - C-REACTIVE PROTEIN INCREASED [None]
  - DIZZINESS [None]
  - MUSCULOSKELETAL STIFFNESS [None]
  - MYALGIA [None]
